FAERS Safety Report 23750208 (Version 3)
Quarter: 2024Q3

REPORT INFORMATION
  Report Type: Report from Study
  Country: PR (occurrence: US)
  Receive Date: 20240417
  Receipt Date: 20240709
  Transmission Date: 20241016
  Serious: No
  Sender: ACADIA PHARMACEUTICALS
  Company Number: PR-ACADIA PHARMACEUTICALS INC.-ACA-2024-TRF-001446

PATIENT
  Sex: Female

DRUGS (6)
  1. DAYBUE [Suspect]
     Active Substance: TROFINETIDE
     Indication: Rett syndrome
     Dosage: 25 MILLILITER, BID
     Route: 048
  2. DAYBUE [Suspect]
     Active Substance: TROFINETIDE
     Dosage: 30 MILLILITRE, BID
     Route: 048
     Dates: start: 20240326
  3. DAYBUE [Suspect]
     Active Substance: TROFINETIDE
     Dosage: 25 MILLILITER, BID
     Route: 048
  4. DAYBUE [Suspect]
     Active Substance: TROFINETIDE
     Dosage: 20 MILLILITER, BID
     Route: 048
  5. DAYBUE [Suspect]
     Active Substance: TROFINETIDE
     Dosage: 40 MILLILITER BID
     Route: 048
  6. METAMUCIL [Suspect]
     Active Substance: PLANTAGO SEED
     Indication: Diarrhoea
     Dosage: UNKNOWN
     Route: 065

REACTIONS (10)
  - Abdominal distension [Unknown]
  - Abdominal pain [Unknown]
  - Screaming [Unknown]
  - Crying [Unknown]
  - Product dose omission issue [Recovered/Resolved]
  - Underdose [Not Recovered/Not Resolved]
  - Diarrhoea [Not Recovered/Not Resolved]
  - Diarrhoea [Not Recovered/Not Resolved]
  - Nasopharyngitis [Recovering/Resolving]
  - Diarrhoea [Not Recovered/Not Resolved]
